FAERS Safety Report 25318630 (Version 3)
Quarter: 2025Q3

REPORT INFORMATION
  Report Type: Spontaneous
  Country: US (occurrence: US)
  Receive Date: 20250515
  Receipt Date: 20250717
  Transmission Date: 20251020
  Serious: No
  Sender: BOEHRINGER INGELHEIM
  Company Number: US-Komodo Health-a23aa000007W1hjAAC

PATIENT
  Age: 81 Year
  Sex: Male

DRUGS (1)
  1. STIOLTO RESPIMAT [Suspect]
     Active Substance: OLODATEROL HYDROCHLORIDE\TIOTROPIUM BROMIDE MONOHYDRATE
     Indication: Chronic obstructive pulmonary disease

REACTIONS (4)
  - Lip swelling [Recovering/Resolving]
  - Oral discomfort [Recovering/Resolving]
  - Dysphonia [Recovering/Resolving]
  - Device defective [Unknown]

NARRATIVE: CASE EVENT DATE: 20250501
